FAERS Safety Report 6637826 (Version 13)
Quarter: 2015Q1

REPORT INFORMATION
  Report Type: Spontaneous
  Country: US (occurrence: US)
  Receive Date: 20080512
  Receipt Date: 20150129
  Transmission Date: 20150721
  Serious: Yes (Other)
  Sender: FDA-Public Use
  Company Number: PHEH2008US04392

PATIENT
  Sex: Male
  Weight: 84.35 kg

DRUGS (40)
  1. AREDIA [Suspect]
     Active Substance: PAMIDRONATE DISODIUM
     Indication: BONE DISORDER
     Route: 042
     Dates: start: 200112
  2. AUGMENTIN [Concomitant]
     Active Substance: AMOXICILLIN\CLAVULANATE POTASSIUM
     Dosage: 875 MG, BID
     Route: 048
  3. DIPHENOXYLATE [Concomitant]
     Active Substance: DIPHENOXYLATE
     Dosage: 5 MG, Q4H PRN
  4. HUMULIN NOS [Concomitant]
     Active Substance: INSULIN HUMAN
  5. ASPIRIN ^BAYER^ [Concomitant]
     Active Substance: ASPIRIN
  6. ADRIAMYCIN [Concomitant]
     Active Substance: DOXORUBICIN HYDROCHLORIDE
     Indication: PRODUCT USED FOR UNKNOWN INDICATION
     Route: 065
  7. METRONIDAZOLE. [Concomitant]
     Active Substance: METRONIDAZOLE
     Dosage: 500 MG, UNK
  8. PENICILLIN VK [Concomitant]
     Active Substance: PENICILLIN V POTASSIUM
  9. GABAPENTIN. [Concomitant]
     Active Substance: GABAPENTIN
     Dosage: 300 MG, UNK
  10. VITAMIN E [Concomitant]
     Active Substance: .ALPHA.-TOCOPHEROL
     Dosage: 400 IU, QD
  11. LANTUS [Concomitant]
     Active Substance: INSULIN GLARGINE
     Dosage: 30 U, QHS
  12. OMNICEF [Concomitant]
     Active Substance: CEFDINIR
     Dosage: 300 MG, UNK
  13. PROCHLORPERAZINE. [Concomitant]
     Active Substance: PROCHLORPERAZINE
     Dosage: 10 MG, UNK
  14. AMOXICILINA CLAV ^GEMINIS^ [Concomitant]
     Dosage: 125 MG, UNK
  15. NEURONTIN [Concomitant]
     Active Substance: GABAPENTIN
     Dosage: 600 MG, TID
     Route: 048
  16. LYRICA [Concomitant]
     Active Substance: PREGABALIN
  17. VIOXX [Concomitant]
     Active Substance: ROFECOXIB
     Dosage: 25 MG, QD
  18. SENNA [Concomitant]
     Active Substance: SENNA LEAF\SENNOSIDES\SENNOSIDES A AND B
  19. PREDNISONE. [Concomitant]
     Active Substance: PREDNISONE
  20. INSULIN [Concomitant]
     Active Substance: INSULIN NOS
  21. DEXAMETHASONE. [Concomitant]
     Active Substance: DEXAMETHASONE
     Dosage: 10 MG, QD ON 4DAYS THEN OFF 4 DAYS
  22. ZYMAR [Concomitant]
     Active Substance: GATIFLOXACIN
  23. LORTAB [Concomitant]
     Active Substance: ACETAMINOPHEN\HYDROCODONE BITARTRATE
     Dosage: 5 MG, UNK
  24. CLINDAMYCIN [Concomitant]
     Active Substance: CLINDAMYCIN\CLINDAMYCIN PHOSPHATE
     Dosage: 900 MG, UNK
  25. OXYCONTIN [Concomitant]
     Active Substance: OXYCODONE HYDROCHLORIDE
     Dosage: 80 MG, BID
  26. RADIATION THERAPY [Concomitant]
     Active Substance: RADIATION THERAPY
  27. PERIDEX [Concomitant]
     Active Substance: CHLORHEXIDINE GLUCONATE
  28. VINCRISTINE [Concomitant]
     Active Substance: VINCRISTINE
     Indication: PRODUCT USED FOR UNKNOWN INDICATION
     Route: 065
  29. FUROSEMIDE. [Concomitant]
     Active Substance: FUROSEMIDE
     Dosage: 20 MG, UNK
  30. VIAGRA [Concomitant]
     Active Substance: SILDENAFIL CITRATE
     Dosage: 50 MG, UNK
  31. PEROXIDE [Concomitant]
     Dosage: 20 ML, BID SWISH AND SPIT
     Route: 048
  32. VITAMIN C [Concomitant]
     Active Substance: ASCORBIC ACID
     Dosage: 500 MG, BID
  33. FLAGYL [Concomitant]
     Active Substance: METRONIDAZOLE\METRONIDAZOLE HYDROCHLORIDE
     Dosage: 500 MG, UNK
  34. AREDIA [Suspect]
     Active Substance: PAMIDRONATE DISODIUM
     Route: 065
     Dates: start: 2002, end: 200405
  35. ZOMETA [Suspect]
     Active Substance: ZOLEDRONIC ACID
     Indication: PRODUCT USED FOR UNKNOWN INDICATION
     Route: 065
  36. AMOXICILLIN. [Concomitant]
     Active Substance: AMOXICILLIN
  37. ACTOS [Concomitant]
     Active Substance: PIOGLITAZONE HYDROCHLORIDE
     Dosage: 45 MG, QAM
     Route: 048
  38. KEFLEX [Concomitant]
     Active Substance: CEPHALEXIN
  39. DECADRON [Concomitant]
     Active Substance: DEXAMETHASONE
  40. CEPHALEXIN. [Concomitant]
     Active Substance: CEPHALEXIN
     Dosage: 500 MG, UNK

REACTIONS (68)
  - Osteonecrosis of jaw [Unknown]
  - Bone fragmentation [Unknown]
  - Pollakiuria [Unknown]
  - Bone loss [Unknown]
  - Exostosis [Unknown]
  - Mouth ulceration [Unknown]
  - Gait disturbance [Unknown]
  - Dehydration [Unknown]
  - Bone cancer [Unknown]
  - Insomnia [Unknown]
  - Abdominal pain [Unknown]
  - Toothache [Unknown]
  - Malaise [Unknown]
  - Anaemia [Unknown]
  - Swelling face [Unknown]
  - Spondylolisthesis [Unknown]
  - Oedema [Unknown]
  - Paraesthesia [Unknown]
  - Arthralgia [Unknown]
  - Compression fracture [Unknown]
  - Pathological fracture [Unknown]
  - Jaw fracture [Unknown]
  - Bone erosion [Unknown]
  - Stomatitis [Unknown]
  - Bone deformity [Unknown]
  - Glossodynia [Unknown]
  - Constipation [Unknown]
  - Joint stiffness [Unknown]
  - Back pain [Unknown]
  - Pain in jaw [Unknown]
  - Infection [Unknown]
  - Hyperglycaemia [Unknown]
  - Sinus disorder [Unknown]
  - Erectile dysfunction [Unknown]
  - Impaired healing [Unknown]
  - Osteitis [Unknown]
  - Fatigue [Unknown]
  - Intervertebral disc space narrowing [Unknown]
  - Facet joint syndrome [Unknown]
  - Faecaloma [Unknown]
  - Urinary retention [Unknown]
  - Kyphosis [Unknown]
  - Pancytopenia [Unknown]
  - Injury [Unknown]
  - Osteomyelitis [Unknown]
  - Decreased appetite [Unknown]
  - Thrombocytopenia [Unknown]
  - Pyrexia [Unknown]
  - Leukopenia [Unknown]
  - Purulence [Unknown]
  - Hypertension [Unknown]
  - Haemorrhoids [Unknown]
  - Lung disorder [Unknown]
  - Muscular weakness [Unknown]
  - Loose tooth [Unknown]
  - Intervertebral disc degeneration [Unknown]
  - Osteoarthritis [Unknown]
  - Anxiety [Unknown]
  - Speech disorder [Unknown]
  - Dental caries [Unknown]
  - Bone disorder [Unknown]
  - Leukocytosis [Unknown]
  - Decreased immune responsiveness [Unknown]
  - Oral candidiasis [Unknown]
  - Anaemia of malignant disease [Unknown]
  - Pain in extremity [Unknown]
  - Oral pain [Unknown]
  - Perirectal abscess [Recovered/Resolved]
